FAERS Safety Report 9400636 (Version 2)
Quarter: 2014Q3

REPORT INFORMATION
  Report Type: Report from Study
  Country: FR (occurrence: FR)
  Receive Date: 20130715
  Receipt Date: 20140929
  Transmission Date: 20150326
  Serious: Yes (Hospitalization, Other)
  Sender: FDA-Public Use
  Company Number: FR-BRISTOL-MYERS SQUIBB COMPANY-19075951

PATIENT
  Age: 75 Year
  Sex: Male

DRUGS (3)
  1. IPILIMUMAB [Suspect]
     Active Substance: IPILIMUMAB
     Indication: MALIGNANT MELANOMA
     Route: 042
     Dates: start: 20130531
  2. IPILIMUMAB [Suspect]
     Active Substance: IPILIMUMAB
     Indication: METASTASES TO CENTRAL NERVOUS SYSTEM
     Route: 042
     Dates: start: 20130531
  3. SITAGLIPTIN PHOSPHATE + METFORMIN HCL [Concomitant]
     Active Substance: METFORMIN\SITAGLIPTIN

REACTIONS (3)
  - Hemiplegia [Recovered/Resolved with Sequelae]
  - Hepatic failure [Unknown]
  - Aphasia [Recovered/Resolved with Sequelae]

NARRATIVE: CASE EVENT DATE: 20130609
